FAERS Safety Report 6077405-9 (Version None)
Quarter: 2009Q1

REPORT INFORMATION
  Report Type: 
  Country: None (occurrence: None)
  Receive Date: 20090213
  Receipt Date: 20090204
  Transmission Date: 20090719
  Serious: Yes (Hospitalization)
  Sender: FDA-Public Use
  Company Number: US-JNJFOC-20090100759

PATIENT
  Sex: Female
  Weight: 49.9 kg

DRUGS (5)
  1. DURAGESIC-100 [Suspect]
     Indication: NEUROPATHY PERIPHERAL
     Route: 062
  2. LOMOTIL [Concomitant]
     Indication: DIARRHOEA
     Dosage: AS NEEDED
     Route: 048
  3. NEURONTIN [Concomitant]
     Indication: PAIN
     Route: 048
  4. ARICEPT [Concomitant]
     Indication: MEMORY IMPAIRMENT
     Route: 048
  5. BENTYL [Concomitant]
     Indication: GASTRIC DISORDER
     Route: 048

REACTIONS (3)
  - DRUG EFFECT DECREASED [None]
  - INJURY [None]
  - MUSCLE STRAIN [None]
